FAERS Safety Report 4612045-7 (Version None)
Quarter: 2005Q2

REPORT INFORMATION
  Report Type: 
  Country: None (occurrence: None)
  Receive Date: 20050308
  Receipt Date: 20050104
  Transmission Date: 20051028
  Serious: Yes (Other)
  Sender: FDA-Public Use
  Company Number: 2005UW00146

PATIENT
  Age: 63 Year
  Sex: Female
  Weight: 113.39 kg

DRUGS (2)
  1. CRESTOR [Suspect]
     Indication: BLOOD CHOLESTEROL INCREASED
     Dosage: 10 MG QOD PO
     Route: 048
  2. PRESSURE PILLS [Concomitant]

REACTIONS (1)
  - LOGORRHOEA [None]
